FAERS Safety Report 8467461-2 (Version None)
Quarter: 2012Q2

REPORT INFORMATION
  Report Type: 
  Country: None (occurrence: None)
  Receive Date: 20120626
  Receipt Date: 20120430
  Transmission Date: 20120825
  Serious: No
  Sender: FDA-Public Use
  Company Number: US-ASTRAZENECA-2012SE27999

PATIENT
  Age: 69 Year
  Sex: Female

DRUGS (5)
  1. CAPRELSA [Suspect]
     Indication: THYROID CANCER
     Route: 048
  2. PROCHLORPERAZINE MALEATE [Concomitant]
  3. SYNTHROID [Concomitant]
  4. ATENOLOL [Concomitant]
  5. LEXAPRO [Concomitant]

REACTIONS (2)
  - DYSGEUSIA [None]
  - DYSPNOEA [None]
